FAERS Safety Report 24069290 (Version 1)
Quarter: 2024Q3

REPORT INFORMATION
  Report Type: Report from Study
  Country: CN (occurrence: CN)
  Receive Date: 20240710
  Receipt Date: 20240710
  Transmission Date: 20241017
  Serious: No
  Sender: ROCHE
  Company Number: CN-ROCHE-3213346

PATIENT
  Age: 60 Year
  Sex: Male
  Weight: 70.0 kg

DRUGS (2)
  1. ALECENSA [Suspect]
     Active Substance: ALECTINIB HYDROCHLORIDE
     Indication: Lung adenocarcinoma
     Dosage: 150MG* 224CAPSULES (56CAPSULES* 4 SMALL BOXES)
     Route: 048
     Dates: start: 20211124
  2. AMLODIPINE BESYLATE [Concomitant]
     Active Substance: AMLODIPINE BESYLATE
     Indication: Hypertension
     Route: 048

REACTIONS (6)
  - Diarrhoea [Recovering/Resolving]
  - Gingivitis [Recovering/Resolving]
  - Oedema peripheral [Recovering/Resolving]
  - Asthenia [Unknown]
  - Dyspnoea [Not Recovered/Not Resolved]
  - Varicose vein [Not Recovered/Not Resolved]

NARRATIVE: CASE EVENT DATE: 20221001
